FAERS Safety Report 5994655-8 (Version None)
Quarter: 2008Q4

REPORT INFORMATION
  Report Type: 
  Country: None (occurrence: None)
  Receive Date: 20081212
  Receipt Date: 20080910
  Transmission Date: 20090506
  Serious: No
  Sender: FDA-Public Use
  Company Number: US-ABBOTT-08P-163-0475792-00

PATIENT
  Sex: Female
  Weight: 79.904 kg

DRUGS (15)
  1. HUMIRA [Suspect]
     Indication: RHEUMATOID ARTHRITIS
     Route: 058
     Dates: start: 20080826
  2. INSULIN ZINC AMORPH (SCHWEIN) [Concomitant]
     Indication: DIABETES MELLITUS
     Dosage: AT NIGHT
     Route: 058
     Dates: start: 20070227
  3. BYETTA INSULIN [Concomitant]
     Indication: DIABETES MELLITUS
     Dosage: PREMEASURED PEN
     Route: 058
     Dates: start: 20070227
  4. ACETYLSALICYLIC ACID SRT [Concomitant]
     Indication: PROPHYLAXIS
     Route: 048
  5. HYDROCHLOROTHIAZIDE [Concomitant]
     Indication: HYPERTENSION
     Route: 048
  6. ATACAN [Concomitant]
     Indication: HYPERTENSION
     Route: 048
  7. ESOMEPRAZOLE MAGNESIUM [Concomitant]
     Indication: GASTROOESOPHAGEAL REFLUX DISEASE
     Route: 048
  8. TRAMADOL HYDROCHLORIDE [Concomitant]
     Indication: PAIN
     Route: 048
  9. ACETAMINOPHEN [Concomitant]
     Indication: PAIN
     Dosage: UP TO 1300 MILLIGRAMS DAILY, 325 MILLIGRAMS UP TO 4 DAILY
     Route: 048
  10. LACTOBACILLUS ACIDOPHILUS [Concomitant]
     Indication: GASTROOESOPHAGEAL REFLUX DISEASE
     Route: 048
  11. GLUCOSAMINE W/CHONDROITIN SULFATE [Concomitant]
     Indication: RHEUMATOID ARTHRITIS
     Dosage: 1500/1200 MILLIGRAMS
     Route: 048
  12. GLIPIZIDE [Concomitant]
     Indication: DIABETES MELLITUS
     Dosage: 5 MILLIGRAMS IN THE AM AND 2.5 MILLIGRAMS AT NIGHT
     Route: 048
  13. ZOCOR [Concomitant]
     Indication: BLOOD CHOLESTEROL INCREASED
     Route: 048
  14. IBANDRONATE SODIUM [Concomitant]
     Indication: PROPHYLAXIS
     Route: 048
  15. MAGNESIUM HYDROXIDE TAB [Concomitant]
     Indication: PROPHYLAXIS
     Dosage: EVERY NIGHT
     Route: 048

REACTIONS (3)
  - ACCIDENTAL EXPOSURE [None]
  - BLOOD GLUCOSE INCREASED [None]
  - INJECTION SITE PAIN [None]
